FAERS Safety Report 8335598-4 (Version None)
Quarter: 2012Q2

REPORT INFORMATION
  Report Type: 
  Country: None (occurrence: None)
  Receive Date: 20120504
  Receipt Date: 20120425
  Transmission Date: 20120825
  Serious: Yes (Hospitalization)
  Sender: FDA-Public Use
  Company Number: US-BIOGENIDEC-2012BI006471

PATIENT
  Age: 43 Year
  Sex: Male

DRUGS (4)
  1. AVONEX [Concomitant]
     Indication: MULTIPLE SCLEROSIS
     Route: 030
  2. TYSABRI [Suspect]
     Route: 042
     Dates: start: 20110922
  3. TYSABRI [Suspect]
     Indication: MULTIPLE SCLEROSIS
     Route: 042
  4. AVONEX [Concomitant]
     Route: 030
     Dates: start: 20101215

REACTIONS (1)
  - INTERVERTEBRAL DISC DEGENERATION [None]
